FAERS Safety Report 14015527 (Version 1)
Quarter: 2017Q3

REPORT INFORMATION
  Report Type: Spontaneous
  Country: AZ (occurrence: AZ)
  Receive Date: 20170927
  Receipt Date: 20170927
  Transmission Date: 20171128
  Serious: Yes (Death)
  Sender: FDA-Public Use
  Company Number: AZ-SA-2017SA177289

PATIENT
  Weight: 13 kg

DRUGS (2)
  1. FORTUM [Concomitant]
     Active Substance: CEFTAZIDIME
     Route: 065
  2. MYOZYME [Suspect]
     Active Substance: ALGLUCOSIDASE ALFA
     Indication: GLYCOGEN STORAGE DISEASE TYPE II
     Route: 041
     Dates: start: 201612

REACTIONS (2)
  - Oxygen saturation decreased [Unknown]
  - Respiratory failure [Fatal]
